FAERS Safety Report 9964422 (Version 1)
Quarter: 2014Q1

REPORT INFORMATION
  Report Type: Spontaneous
  Country: US (occurrence: US)
  Receive Date: 20140305
  Receipt Date: 20140305
  Transmission Date: 20141002
  Serious: Yes (Other)
  Sender: FDA-Public Use
  Company Number: US-PFIZER INC-2014054665

PATIENT
  Age: 68 Year
  Sex: Female
  Weight: 61.68 kg

DRUGS (1)
  1. FIBERCON [Suspect]
     Indication: CONSTIPATION
     Dosage: TWO TABLETS AT NIGHT
     Route: 048
     Dates: start: 2012, end: 20140223

REACTIONS (10)
  - Hypertension [Recovering/Resolving]
  - Drug hypersensitivity [Unknown]
  - Dizziness [Recovering/Resolving]
  - Asthenia [Recovering/Resolving]
  - Feeling abnormal [Recovering/Resolving]
  - Malaise [Recovering/Resolving]
  - Abdominal distension [Unknown]
  - Activities of daily living impaired [Recovering/Resolving]
  - Pain [Recovering/Resolving]
  - Abdominal pain [Recovering/Resolving]
